FAERS Safety Report 17281163 (Version 3)
Quarter: 2020Q2

REPORT INFORMATION
  Report Type: Spontaneous
  Country: US (occurrence: US)
  Receive Date: 20200117
  Receipt Date: 20200602
  Transmission Date: 20200713
  Serious: No
  Sender: FDA-Public Use
  Company Number: NVSC2019US042945

PATIENT
  Age: 80 Year
  Sex: Female

DRUGS (3)
  1. JAKAFI [Suspect]
     Active Substance: RUXOLITINIB
     Dosage: 25 MG, QD
     Route: 048
     Dates: start: 201502
  2. JAKAFI [Suspect]
     Active Substance: RUXOLITINIB
     Indication: MYELOFIBROSIS
     Dosage: 25 MG, QD
     Route: 048
     Dates: start: 20150215
  3. JAKAFI [Suspect]
     Active Substance: RUXOLITINIB
     Dosage: 25 MG, QD
     Route: 048
     Dates: start: 201502

REACTIONS (18)
  - Balance disorder [Unknown]
  - Pain [Recovering/Resolving]
  - Face injury [Not Recovered/Not Resolved]
  - Rash [Recovered/Resolved]
  - Sleep disorder [Unknown]
  - Cough [Not Recovered/Not Resolved]
  - Asthenia [Recovering/Resolving]
  - Emotional disorder [Not Recovered/Not Resolved]
  - Post herpetic neuralgia [Unknown]
  - Herpes zoster [Not Recovered/Not Resolved]
  - Fall [Not Recovered/Not Resolved]
  - Back pain [Recovering/Resolving]
  - Poor quality sleep [Recovering/Resolving]
  - Feeding disorder [Not Recovered/Not Resolved]
  - Dizziness [Not Recovered/Not Resolved]
  - Nausea [Not Recovered/Not Resolved]
  - Fatigue [Not Recovered/Not Resolved]
  - Discomfort [Not Recovered/Not Resolved]

NARRATIVE: CASE EVENT DATE: 20191130
